FAERS Safety Report 6119129-5 (Version None)
Quarter: 2009Q1

REPORT INFORMATION
  Report Type: 
  Country: None (occurrence: None)
  Receive Date: 20090316
  Receipt Date: 20090304
  Transmission Date: 20090719
  Serious: Yes (Other)
  Sender: FDA-Public Use
  Company Number: CA-ROCHE-617036

PATIENT
  Sex: Female

DRUGS (4)
  1. PEGASYS [Suspect]
     Route: 058
     Dates: start: 20090121, end: 20090129
  2. COPEGUS [Suspect]
     Route: 048
     Dates: start: 20090121, end: 20090129
  3. LASIX [Concomitant]
     Route: 048
     Dates: start: 20090119
  4. SPIRONOLACTONE [Concomitant]
     Route: 048
     Dates: start: 20090119, end: 20090216

REACTIONS (6)
  - ASCITES [None]
  - HEPATIC FAILURE [None]
  - NEUTROPHIL COUNT DECREASED [None]
  - PLATELET COUNT DECREASED [None]
  - TRANSAMINASES INCREASED [None]
  - UMBILICAL HERNIA [None]
